FAERS Safety Report 7157964-5 (Version None)
Quarter: 2010Q4

REPORT INFORMATION
  Report Type: 
  Country: None (occurrence: None)
  Receive Date: 20101214
  Receipt Date: 20101209
  Transmission Date: 20110411
  Serious: Yes (Hospitalization, Other)
  Sender: FDA-Public Use
  Company Number: US-PFIZER INC-2010168572

PATIENT
  Sex: Female
  Weight: 79.365 kg

DRUGS (8)
  1. LIPITOR [Suspect]
     Indication: BLOOD CHOLESTEROL INCREASED
     Dosage: 80 MG, 1X/DAY
     Dates: start: 20050101
  2. LIPITOR [Suspect]
     Indication: DIABETES MELLITUS
     Dosage: 40 MG, DAILY
     Route: 048
     Dates: start: 20000101, end: 20050101
  3. SYNTHROID [Concomitant]
     Indication: THYROID DISORDER
     Dosage: 0.137 MG, DAILY
  4. COREG [Concomitant]
     Dosage: 12.5 MG, 2X/DAY
  5. ACETYLSALICYLIC ACID [Concomitant]
     Indication: CARDIAC DISORDER
     Dosage: 81 MG, DAILY
  6. LISINOPRIL [Concomitant]
     Dosage: UNK, 2X/DAY
     Dates: end: 20101129
  7. LISINOPRIL [Concomitant]
     Dosage: UNK, 1X/DAY
     Dates: start: 20101129
  8. INSULIN [Concomitant]
     Indication: DIABETES MELLITUS

REACTIONS (9)
  - ARTERIAL OCCLUSIVE DISEASE [None]
  - ATRIAL FIBRILLATION [None]
  - BLOOD CHOLESTEROL INCREASED [None]
  - CARDIAC DISORDER [None]
  - DYSPNOEA [None]
  - LOSS OF CONSCIOUSNESS [None]
  - LUNG NEOPLASM [None]
  - PULMONARY MASS [None]
  - VENTRICULAR EXTRASYSTOLES [None]
